FAERS Safety Report 5226099-0 (Version None)
Quarter: 2007Q1

REPORT INFORMATION
  Report Type: 
  Country: None (occurrence: None)
  Receive Date: 20070201
  Receipt Date: 20070125
  Transmission Date: 20070707
  Serious: Yes (Life-Threatening, Hospitalization)
  Sender: FDA-Public Use
  Company Number: HQWYE956705JUN06

PATIENT
  Sex: Female
  Weight: 66.28 kg

DRUGS (3)
  1. PREMPRO [Suspect]
     Indication: MENOPAUSAL SYMPTOMS
     Dosage: 0.3/1.5 MG 1 TABLET 1X PER 1 DAY
     Route: 048
     Dates: start: 20060201, end: 20060411
  2. PREMPRO [Suspect]
     Dosage: 0.45/1.5 MG 1 TABLET 1X PER 1 DAY
     Route: 048
     Dates: start: 20060412, end: 20060514
  3. ADVIL [Concomitant]
     Indication: PAIN
     Dosage: PRN (RARE)
     Route: 065

REACTIONS (1)
  - IDIOPATHIC THROMBOCYTOPENIC PURPURA [None]
